FAERS Safety Report 19117103 (Version 1)
Quarter: 2021Q2

REPORT INFORMATION
  Report Type: Spontaneous
  Country: IL (occurrence: IL)
  Receive Date: 20210409
  Receipt Date: 20210409
  Transmission Date: 20210717
  Serious: Yes (Other)
  Sender: FDA-Public Use
  Company Number: IL-BRACCO-2021IL01344

PATIENT
  Age: 64 Year
  Sex: Male

DRUGS (3)
  1. SONOVUE [Suspect]
     Active Substance: SULFUR HEXAFLUORIDE
     Indication: DIAGNOSTIC PROCEDURE
     Dosage: 2.5 MG, SINGLE
     Dates: start: 20210203, end: 20210203
  2. SONOVUE [Suspect]
     Active Substance: SULFUR HEXAFLUORIDE
     Indication: DIAGNOSTIC PROCEDURE
     Dosage: 2.5 MG, SINGLE
     Dates: start: 20210203, end: 20210203
  3. SONOVUE [Suspect]
     Active Substance: SULFUR HEXAFLUORIDE
     Indication: DIAGNOSTIC PROCEDURE
     Dosage: 2.5 MG, SINGLE
     Dates: start: 20210203, end: 20210203

REACTIONS (2)
  - Feeling cold [Unknown]
  - Chills [Unknown]

NARRATIVE: CASE EVENT DATE: 20210203
